APPROVED DRUG PRODUCT: VALGANCICLOVIR HYDROCHLORIDE
Active Ingredient: VALGANCICLOVIR HYDROCHLORIDE
Strength: EQ 450MG BASE
Dosage Form/Route: TABLET;ORAL
Application: A209672 | Product #001
Applicant: CIPLA LTD
Approved: Nov 9, 2018 | RLD: No | RS: No | Type: DISCN